FAERS Safety Report 23716897 (Version 6)
Quarter: 2024Q3

REPORT INFORMATION
  Report Type: Spontaneous
  Country: US (occurrence: US)
  Receive Date: 20240408
  Receipt Date: 20240701
  Transmission Date: 20241017
  Serious: No
  Sender: NOVARTIS
  Company Number: US-002147023-NVSC2024US073800

PATIENT
  Age: 37 Year

DRUGS (1)
  1. KESIMPTA [Suspect]
     Active Substance: OFATUMUMAB
     Indication: Product used for unknown indication
     Dosage: UNK
     Route: 065

REACTIONS (13)
  - Feeling hot [Unknown]
  - Nasopharyngitis [Unknown]
  - Fatigue [Unknown]
  - Chills [Unknown]
  - Headache [Unknown]
  - Cerebral disorder [Unknown]
  - Dizziness [Unknown]
  - Vertigo [Unknown]
  - Myalgia [Unknown]
  - Neuralgia [Unknown]
  - Palpitations [Unknown]
  - Condition aggravated [Unknown]
  - Central nervous system lesion [Unknown]
